FAERS Safety Report 7285617-1 (Version None)
Quarter: 2011Q1

REPORT INFORMATION
  Report Type: 
  Country: None (occurrence: None)
  Receive Date: 20110210
  Receipt Date: 20110209
  Transmission Date: 20110831
  Serious: Yes (Hospitalization)
  Sender: FDA-Public Use
  Company Number: A0853524A

PATIENT
  Age: 57 Year
  Sex: Male
  Weight: 95 kg

DRUGS (1)
  1. AVANDIA [Suspect]
     Indication: DIABETES MELLITUS
     Route: 048
     Dates: start: 20060101, end: 20061201

REACTIONS (3)
  - MYOCARDIAL INFARCTION [None]
  - CARDIAC DISORDER [None]
  - CORONARY ARTERY DISEASE [None]
